FAERS Safety Report 10701166 (Version 1)
Quarter: 2014Q4

REPORT INFORMATION
  Report Type: Spontaneous
  Country: US (occurrence: None)
  Receive Date: 20141229
  Receipt Date: 20141229
  Transmission Date: 20150529
  Serious: Yes (Hospitalization)
  Sender: FDA-Public Use
  Company Number: 2014AP001240

PATIENT
  Age: 72 Year
  Sex: Male

DRUGS (8)
  1. LITHIUM CARBONATE. [Suspect]
     Active Substance: LITHIUM CARBONATE
     Dosage: 300MG DAILY, UNKNOWN
  2. ASPIRIN. [Suspect]
     Active Substance: ASPIRIN
  3. DULOXETINE (DULOXETINE) [Concomitant]
  4. LISINOPRIL. [Suspect]
     Active Substance: LISINOPRIL
  5. METFORMIN [Concomitant]
     Active Substance: METFORMIN HYDROCHLORIDE
  6. OLAZAPINE (OLANZAPINE) [Concomitant]
  7. ARIPIPRAZOLE (ARIPIPRAZOLE) [Concomitant]
     Active Substance: ARIPIPRAZOLE
  8. PAROXETINE (PAROXETINE) [Concomitant]
     Active Substance: PAROXETINE HYDROCHLORIDE

REACTIONS (1)
  - Toxicity to various agents [None]
